FAERS Safety Report 7276148-3 (Version None)
Quarter: 2011Q1

REPORT INFORMATION
  Report Type: 
  Country: None (occurrence: None)
  Receive Date: 20110204
  Receipt Date: 20110121
  Transmission Date: 20110831
  Serious: Yes (Hospitalization, Other)
  Sender: FDA-Public Use
  Company Number: PHHY2010DE27055

PATIENT
  Age: 79 Year
  Sex: Female
  Weight: 55.782 kg

DRUGS (4)
  1. ALENDRONIC ACID [Interacting]
     Indication: OSTEOPOROSIS
     Dosage: 70 MG, QD
     Route: 048
     Dates: start: 20070101
  2. CALCIUM D3 [Suspect]
     Indication: OSTEOPOROSIS
     Dosage: 1 DF, QD
     Route: 048
     Dates: start: 20070101, end: 20100305
  3. RAMIPRIL [Concomitant]
     Indication: HYPERTENSION
     Dosage: 10 MG
     Route: 048
  4. EXELON [Interacting]
     Indication: DEMENTIA
     Dosage: 9 MG, QD
     Route: 062
     Dates: start: 20090901, end: 20100305

REACTIONS (11)
  - VOMITING [None]
  - DEHYDRATION [None]
  - HYPERCALCAEMIA [None]
  - FALL [None]
  - DIZZINESS [None]
  - NAUSEA [None]
  - VERTIGO [None]
  - RENAL FAILURE ACUTE [None]
  - CEREBROVASCULAR ACCIDENT [None]
  - DRUG INTERACTION [None]
  - GENERAL PHYSICAL HEALTH DETERIORATION [None]
